FAERS Safety Report 5801365-6 (Version None)
Quarter: 2008Q3

REPORT INFORMATION
  Report Type: 
  Country: None (occurrence: None)
  Receive Date: 20080707
  Receipt Date: 20080624
  Transmission Date: 20090109
  Serious: Yes (Death)
  Sender: FDA-Public Use
  Company Number: US-NOVOPROD-275980

PATIENT
  Age: 5 Year
  Sex: Female

DRUGS (7)
  1. NORDITROPIN NORDIFLEX [Suspect]
     Indication: DRUG USE FOR UNKNOWN INDICATION
     Route: 058
     Dates: start: 20070801
  2. SYNTHROID [Concomitant]
     Indication: HYPOTHYROIDISM
  3. TOPAMAX [Concomitant]
     Indication: CONVULSION
  4. PRILOSEC [Concomitant]
     Indication: GASTROOESOPHAGEAL REFLUX DISEASE
  5. XOPENEX [Concomitant]
     Indication: BRONCHOSPASM
  6. PULMICORT-100 [Concomitant]
     Indication: ASTHMA
  7. SINGULAIR [Concomitant]
     Indication: HYPERSENSITIVITY

REACTIONS (1)
  - DEATH [None]
